FAERS Safety Report 5708229-7 (Version None)
Quarter: 2008Q2

REPORT INFORMATION
  Report Type: 
  Country: None (occurrence: None)
  Receive Date: 20080417
  Receipt Date: 20080414
  Transmission Date: 20081010
  Serious: Yes (Hospitalization)
  Sender: FDA-Public Use
  Company Number: US-GILEAD-2008-0016103

PATIENT
  Sex: Male

DRUGS (11)
  1. LETAIRIS [Suspect]
     Indication: PULMONARY HYPERTENSION
  2. SILDENAFIL CITRATE [Concomitant]
  3. CIPRO [Concomitant]
  4. AMOXICILLIN [Concomitant]
  5. DIGOXIN [Concomitant]
  6. EFAVIRENZ [Concomitant]
  7. EMTRICITABINE [Concomitant]
  8. LASIX [Concomitant]
  9. NEURONTIN [Concomitant]
  10. SERTRALINE [Concomitant]
  11. DIGOXIN [Concomitant]

REACTIONS (2)
  - EAR PAIN [None]
  - PAIN IN JAW [None]
